FAERS Safety Report 7049401-6 (Version None)
Quarter: 2010Q4

REPORT INFORMATION
  Report Type: 
  Country: None (occurrence: None)
  Receive Date: 20101007
  Receipt Date: 20100923
  Transmission Date: 20110411
  Serious: Yes (Other)
  Sender: FDA-Public Use
  Company Number: 2010US003931

PATIENT
  Age: 29 Year
  Sex: Female

DRUGS (10)
  1. PROGRAF [Suspect]
     Indication: RENAL TRANSPLANT
     Dosage: 2 MG, BID, ORAL, 3 MG, BID, ORAL, 4 MG, BID, ORAL, 5 MG, BID, ORAL
     Route: 048
     Dates: end: 20071230
  2. PROGRAF [Suspect]
     Indication: RENAL TRANSPLANT
     Dosage: 2 MG, BID, ORAL, 3 MG, BID, ORAL, 4 MG, BID, ORAL, 5 MG, BID, ORAL
     Route: 048
     Dates: start: 20071231, end: 20080130
  3. PROGRAF [Suspect]
     Indication: RENAL TRANSPLANT
     Dosage: 2 MG, BID, ORAL, 3 MG, BID, ORAL, 4 MG, BID, ORAL, 5 MG, BID, ORAL
     Route: 048
     Dates: start: 20080131, end: 20080713
  4. PROGRAF [Suspect]
     Indication: RENAL TRANSPLANT
     Dosage: 2 MG, BID, ORAL, 3 MG, BID, ORAL, 4 MG, BID, ORAL, 5 MG, BID, ORAL
     Route: 048
     Dates: start: 20080714
  5. AZATHIOPRINE [Concomitant]
  6. PREDNISONE TAB [Concomitant]
  7. LABETALOL HCL [Concomitant]
  8. COUMADIN [Concomitant]
  9. LOVENOX [Concomitant]
  10. MYCOPHENOLATE MOFETIL [Concomitant]

REACTIONS (4)
  - CAESAREAN SECTION [None]
  - DRUG EXPOSURE DURING PREGNANCY [None]
  - PREGNANCY [None]
  - PREMATURE LABOUR [None]
